FAERS Safety Report 5086101-6 (Version None)
Quarter: 2006Q3

REPORT INFORMATION
  Report Type: 
  Country: None (occurrence: None)
  Receive Date: 20060818
  Receipt Date: 20060810
  Transmission Date: 20061208
  Serious: Yes (Hospitalization)
  Sender: FDA-Public Use
  Company Number: 2006-04-0519

PATIENT
  Age: 65 Year
  Sex: Male
  Weight: 51 kg

DRUGS (9)
  1. PEG-INTRON [Suspect]
     Indication: HEPATITIS C
     Dosage: 80-60*MCG QW SUBCUTANEOUS
     Route: 058
     Dates: start: 20060202, end: 20060209
  2. PEG-INTRON [Suspect]
     Indication: HEPATITIS C
     Dosage: 80-60*MCG QW SUBCUTANEOUS
     Route: 058
     Dates: start: 20060202, end: 20060324
  3. PEG-INTRON [Suspect]
     Indication: HEPATITIS C
     Dosage: 80-60*MCG QW SUBCUTANEOUS
     Route: 058
     Dates: start: 20060217, end: 20060324
  4. REBETOL [Suspect]
     Indication: HEPATITIS C
     Dosage: 600-400* MG ORAL
     Route: 048
     Dates: start: 20060202, end: 20060223
  5. REBETOL [Suspect]
     Indication: HEPATITIS C
     Dosage: 600-400* MG ORAL
     Route: 048
     Dates: start: 20060202, end: 20060324
  6. REBETOL [Suspect]
     Indication: HEPATITIS C
     Dosage: 600-400* MG ORAL
     Route: 048
     Dates: start: 20060224, end: 20060324
  7. MYONAL TABLETS [Concomitant]
  8. NEUROVITAN TABLETS [Concomitant]
  9. MARZULENE S GRANULES [Concomitant]

REACTIONS (3)
  - CEREBELLAR INFARCTION [None]
  - ELECTROCARDIOGRAM ABNORMAL [None]
  - LACUNAR INFARCTION [None]
